FAERS Safety Report 9889323 (Version 1)
Quarter: 2014Q1

REPORT INFORMATION
  Report Type: Spontaneous
  Country: US (occurrence: US)
  Receive Date: 20140211
  Receipt Date: 20140211
  Transmission Date: 20141002
  Serious: Yes (Other)
  Sender: FDA-Public Use
  Company Number: US-ASTRAZENECA-2014SE09542

PATIENT
  Age: 76 Year
  Sex: Female
  Weight: 78.9 kg

DRUGS (10)
  1. OMEPRAZOLE [Suspect]
     Indication: GASTRIC DISORDER
     Route: 048
     Dates: start: 2000
  2. ANASTROZOLE [Suspect]
     Indication: BREAST CANCER FEMALE
     Route: 048
     Dates: start: 201206
  3. PAXIL [Concomitant]
     Indication: DIVORCED
  4. PAXIL [Concomitant]
     Indication: RASH
  5. PAXIL [Concomitant]
     Indication: DIVORCED
     Dates: start: 1990
  6. PAXIL [Concomitant]
     Indication: RASH
     Dates: start: 1990
  7. PAXIL [Concomitant]
     Indication: DIVORCED
     Dates: start: 201311
  8. PAXIL [Concomitant]
     Indication: RASH
     Dates: start: 201311
  9. LEVOTHYROXINE [Concomitant]
     Indication: AUTOIMMUNE THYROIDITIS
  10. LOVASTATIN [Concomitant]
     Indication: BLOOD CHOLESTEROL INCREASED

REACTIONS (15)
  - Breast cancer [Unknown]
  - Lung disorder [Unknown]
  - Fungal skin infection [Unknown]
  - Dyspnoea [Unknown]
  - Bronchitis [Unknown]
  - Productive cough [Unknown]
  - Wheezing [Unknown]
  - Dysphonia [Unknown]
  - Autoimmune thyroiditis [Not Recovered/Not Resolved]
  - Blood cholesterol increased [Unknown]
  - Urticaria [Unknown]
  - Rash pruritic [Unknown]
  - Rash generalised [Unknown]
  - Rash [Unknown]
  - Intentional drug misuse [Unknown]
